FAERS Safety Report 10467788 (Version 2)
Quarter: 2015Q1

REPORT INFORMATION
  Report Type: Spontaneous
  Country: DE (occurrence: DE)
  Receive Date: 20140922
  Receipt Date: 20150202
  Transmission Date: 20150720
  Serious: Yes (Other)
  Sender: FDA-Public Use
  Company Number: DE-ASTELLAS-2014EU012577

PATIENT
  Age: 76 Year
  Sex: Female

DRUGS (1)
  1. BETMIGA [Suspect]
     Active Substance: MIRABEGRON
     Indication: PRODUCT USED FOR UNKNOWN INDICATION
     Dosage: UNK UNK, UNKNOWN FREQ.
     Route: 065
     Dates: end: 20140915

REACTIONS (5)
  - Balance disorder [Unknown]
  - Visual impairment [Unknown]
  - Dizziness [Unknown]
  - Fall [Unknown]
  - Loss of control of legs [Unknown]
